FAERS Safety Report 15561049 (Version 3)
Quarter: 2019Q1

REPORT INFORMATION
  Report Type: Spontaneous
  Country: US (occurrence: US)
  Receive Date: 20181029
  Receipt Date: 20190315
  Transmission Date: 20190417
  Serious: Yes (Life-Threatening, Other)
  Sender: FDA-Public Use
  Company Number: US-PFIZER INC-2018439878

PATIENT
  Age: 60 Year
  Sex: Male

DRUGS (1)
  1. LYRICA [Suspect]
     Active Substance: PREGABALIN
     Dosage: UNK
     Dates: end: 2019

REACTIONS (8)
  - Impulsive behaviour [Unknown]
  - Loss of consciousness [Unknown]
  - Amnesia [Unknown]
  - Seizure [Unknown]
  - Irritability [Unknown]
  - Anger [Unknown]
  - Drug dependence [Unknown]
  - Aggression [Unknown]
